FAERS Safety Report 21378701 (Version 1)
Quarter: 2022Q3

REPORT INFORMATION
  Report Type: Spontaneous
  Country: DE (occurrence: DE)
  Receive Date: 20220927
  Receipt Date: 20220927
  Transmission Date: 20221027
  Serious: Yes (Disabling)
  Sender: FDA-Public Use
  Company Number: DE-DENTSPLY-2021SCDP000205

PATIENT
  Age: 51 Year
  Sex: Female
  Weight: 61 kg

DRUGS (1)
  1. MEPIVACAINE [Suspect]
     Active Substance: MEPIVACAINE HYDROCHLORIDE
     Indication: Spinal anaesthesia
     Dosage: 70 MILLIGRAM (IN GLUCOSE 9.5% USING A 27-GAUGE WHITACRE NEEDLE)
     Route: 037

REACTIONS (3)
  - Nervous system disorder [Recovered/Resolved]
  - Radicular pain [Unknown]
  - Anaesthetic complication [Unknown]
